FAERS Safety Report 8911523 (Version 2)
Quarter: 2013Q1

REPORT INFORMATION
  Report Type: Spontaneous
  Country: US (occurrence: US)
  Receive Date: 20121116
  Receipt Date: 20130130
  Transmission Date: 20140127
  Serious: Yes (Other)
  Sender: FDA-Public Use
  Company Number: US-BAYER-2012-120043

PATIENT
  Sex: Female

DRUGS (1)
  1. BAYER ADVANCED ASPIRIN EXTRA STRENGTH [Suspect]
     Indication: ANALGESIC THERAPY
     Dosage: UNK
     Route: 048

REACTIONS (2)
  - Gastric ulcer [None]
  - Pre-existing condition improved [None]
